FAERS Safety Report 18542101 (Version 1)
Quarter: 2020Q4

REPORT INFORMATION
  Report Type: Other
  Country: DE (occurrence: DE)
  Receive Date: 20201124
  Receipt Date: 20201124
  Transmission Date: 20210114
  Serious: Yes (Hospitalization, Other)
  Sender: FDA-Public Use
  Company Number: DE-VALIDUS PHARMACEUTICALS LLC-DE-2020VAL000979

PATIENT

DRUGS (3)
  1. CEFOTAXIME SODIUM [Suspect]
     Active Substance: CEFOTAXIME SODIUM
     Indication: PYELONEPHRITIS
     Dosage: DAILY DOSE: 600 MG MILLGRAM(S) EVERY DAYS 3 SEPARATED DOSES
     Route: 042
     Dates: start: 20200917, end: 20200920
  2. AMPICILLIN [Suspect]
     Active Substance: AMPICILLIN
     Indication: PYELONEPHRITIS
     Dosage: DAILY DOSE: 750 MG MILLGRAM(S) EVERY DAYS 3 SEPARATED DOSES
     Route: 042
     Dates: start: 20200917, end: 20200920
  3. CEFPODOXIME [Suspect]
     Active Substance: CEFPODOXIME
     Indication: PYELONEPHRITIS
     Dosage: DAILY DOSE: 80 MG MILLGRAM(S) EVERY DAYS 2 SEPARATED DOSES
     Route: 048
     Dates: start: 20200920, end: 20200923

REACTIONS (2)
  - Neutropenia [Not Recovered/Not Resolved]
  - Thrombocytosis [Not Recovered/Not Resolved]

NARRATIVE: CASE EVENT DATE: 20200922
